FAERS Safety Report 22327644 (Version 1)
Quarter: 2023Q2

REPORT INFORMATION
  Report Type: Spontaneous
  Country: US (occurrence: US)
  Receive Date: 20230516
  Receipt Date: 20230516
  Transmission Date: 20230721
  Serious: No
  Sender: FDA-Public Use
  Company Number: US-RADIUS HEALTH INC.-2022US005819

PATIENT
  Age: 76 Year
  Sex: Female
  Weight: 74.4 kg

DRUGS (1)
  1. TYMLOS [Suspect]
     Active Substance: ABALOPARATIDE
     Indication: Senile osteoporosis
     Dosage: UNK
     Route: 058
     Dates: start: 20221128, end: 20221201

REACTIONS (3)
  - Neck pain [Recovered/Resolved]
  - Headache [Recovering/Resolving]
  - Heart rate increased [Recovering/Resolving]

NARRATIVE: CASE EVENT DATE: 20221128
